FAERS Safety Report 19221627 (Version 1)
Quarter: 2021Q2

REPORT INFORMATION
  Report Type: Spontaneous
  Country: GB (occurrence: GB)
  Receive Date: 20210506
  Receipt Date: 20210506
  Transmission Date: 20210717
  Serious: Yes (Hospitalization, Other)
  Sender: FDA-Public Use
  Company Number: GB-JNJFOC-20210460607

PATIENT
  Age: 62 Year
  Sex: Male
  Weight: 140 kg

DRUGS (8)
  1. AMLODIPINE [Concomitant]
     Active Substance: AMLODIPINE BESYLATE
     Indication: ILL-DEFINED DISORDER
     Dosage: UNK
  2. OMEPRAZOL [OMEPRAZOLE] [Concomitant]
     Active Substance: OMEPRAZOLE
     Indication: ILL-DEFINED DISORDER
     Dosage: UNK
  3. PARACETAMOL [Concomitant]
     Active Substance: ACETAMINOPHEN
     Indication: ILL-DEFINED DISORDER
     Dosage: UNK
  4. XARELTO [Suspect]
     Active Substance: RIVAROXABAN
     Indication: ILL-DEFINED DISORDER
     Dosage: 10 MG, QD
     Route: 048
     Dates: start: 20210301, end: 20210315
  5. CODEIN [Concomitant]
     Active Substance: CODEINE
     Indication: ILL-DEFINED DISORDER
     Dosage: UNK
  6. NAPROXEN. [Concomitant]
     Active Substance: NAPROXEN
     Indication: ILL-DEFINED DISORDER
     Dosage: UNK
  7. MORPHINE SULFATE. [Concomitant]
     Active Substance: MORPHINE SULFATE
     Indication: ILL-DEFINED DISORDER
     Dosage: UNK
  8. SENNA SPP. EXTRACT [Concomitant]
     Indication: ILL-DEFINED DISORDER
     Dosage: UNK

REACTIONS (4)
  - Back pain [Recovered/Resolved]
  - Blood urine present [Recovered/Resolved]
  - Renal injury [Recovered/Resolved]
  - Urinary retention [Recovered/Resolved with Sequelae]

NARRATIVE: CASE EVENT DATE: 20210303
